FAERS Safety Report 5300636-X (Version None)
Quarter: 2007Q2

REPORT INFORMATION
  Report Type: 
  Country: None (occurrence: None)
  Receive Date: 20070418
  Receipt Date: 20070403
  Transmission Date: 20071010
  Serious: Yes (Death)
  Sender: FDA-Public Use
  Company Number: AR-ELI_LILLY_AND_COMPANY-AR200703000119

PATIENT
  Age: 56 Year
  Sex: Male

DRUGS (2)
  1. XIGRIS [Suspect]
     Indication: SEPSIS
     Dosage: 24 MG/KG, EVERY HOUR
     Route: 042
  2. XIGRIS [Suspect]
     Dosage: 24 UNK, EVERY HOUR
     Route: 042

REACTIONS (1)
  - MULTI-ORGAN FAILURE [None]
